FAERS Safety Report 8978474 (Version 5)
Quarter: 2013Q4

REPORT INFORMATION
  Report Type: Spontaneous
  Country: US (occurrence: US)
  Receive Date: 20121220
  Receipt Date: 20131112
  Transmission Date: 20140711
  Serious: Yes (Hospitalization, Other)
  Sender: FDA-Public Use
  Company Number: US-009507513-2012SP021506

PATIENT
  Sex: Female
  Weight: 129.25 kg

DRUGS (2)
  1. NUVARING [Suspect]
     Indication: CONTRACEPTION
     Route: 067
     Dates: start: 201002, end: 20100425
  2. NUVARING [Suspect]
     Indication: OVARIAN CYST

REACTIONS (26)
  - Tricuspid valve disease [Unknown]
  - Pulmonary embolism [Recovered/Resolved]
  - Deep vein thrombosis [Unknown]
  - Ovarian cystectomy [Unknown]
  - Heart rate irregular [Not Recovered/Not Resolved]
  - Migraine [Not Recovered/Not Resolved]
  - Costochondritis [Unknown]
  - Necrosis [Unknown]
  - Pulmonary mass [Unknown]
  - Pulmonary infarction [Unknown]
  - Extravasation [Unknown]
  - Urticaria [Unknown]
  - Intervertebral disc protrusion [Unknown]
  - Eczema [Unknown]
  - Tonsillitis [Unknown]
  - Pericarditis [Unknown]
  - Sinus tachycardia [Recovering/Resolving]
  - Back pain [Unknown]
  - Neck pain [Unknown]
  - Vasculitis cerebral [Unknown]
  - Encephalitis [Unknown]
  - Vertigo [Unknown]
  - Dizziness [Unknown]
  - Balance disorder [Unknown]
  - Headache [Recovered/Resolved]
  - Pulmonary mass [Unknown]
